FAERS Safety Report 24456840 (Version 1)
Quarter: 2024Q4

REPORT INFORMATION
  Report Type: Spontaneous
  Country: US (occurrence: None)
  Receive Date: 20241018
  Receipt Date: 20241018
  Transmission Date: 20250115
  Serious: No
  Sender: ADAMAS PHARMA
  Company Number: US-ADAMAS PHARMA, LLC-2018ADA03059

PATIENT
  Age: 62 Year
  Sex: Male

DRUGS (4)
  1. GOCOVRI [Suspect]
     Active Substance: AMANTADINE
     Indication: Dyskinesia
     Route: 048
     Dates: start: 20181218
  2. GOCOVRI [Suspect]
     Active Substance: AMANTADINE
     Indication: Parkinson^s disease
     Dosage: 274 MG,
     Route: 048
  3. UNSPECIFIED LEVADOPA-BASED THERAPY [Concomitant]
     Dosage: NOT PROVIDED
  4. GENTEAL MILD [Concomitant]
     Active Substance: HYPROMELLOSE 2910 (4000 MPA.S)
     Dosage: NOT PROVIDED

REACTIONS (2)
  - Speech disorder [Not Recovered/Not Resolved]
  - Insomnia [Not Recovered/Not Resolved]
